FAERS Safety Report 7492967-2 (Version None)
Quarter: 2011Q2

REPORT INFORMATION
  Report Type: 
  Country: None (occurrence: None)
  Receive Date: 20110511
  Receipt Date: 20110504
  Transmission Date: 20111010
  Serious: Yes (Death, Hospitalization)
  Sender: FDA-Public Use
  Company Number: WAES 091USA02598

PATIENT
  Age: 52 Year
  Sex: Male

DRUGS (2)
  1. BORTEZOMIB [Suspect]
     Indication: MULTIPLE MYELOMA
     Dosage: 2.76 MG, IV
     Route: 042
     Dates: start: 20091013, end: 20091106
  2. CAP VORINOSTAT [Suspect]
     Indication: MULTIPLE MYELOMA
     Dosage: PO
     Route: 048
     Dates: end: 20091110

REACTIONS (5)
  - MULTIPLE MYELOMA [None]
  - DISEASE PROGRESSION [None]
  - MUSCULOSKELETAL PAIN [None]
  - THROMBOCYTOPENIA [None]
  - TOXICITY TO VARIOUS AGENTS [None]
